FAERS Safety Report 14449183 (Version 10)
Quarter: 2018Q4

REPORT INFORMATION
  Report Type: Report from Study
  Country: US (occurrence: US)
  Receive Date: 20180126
  Receipt Date: 20181231
  Transmission Date: 20190204
  Serious: Yes (Other)
  Sender: FDA-Public Use
  Company Number: US-BRISTOL-MYERS SQUIBB COMPANY-BMS-2018-004196

PATIENT
  Age: 68 Year
  Sex: Male
  Weight: 131.5 kg

DRUGS (3)
  1. PREDNISONE. [Concomitant]
     Active Substance: PREDNISONE
     Indication: PRODUCT USED FOR UNKNOWN INDICATION
     Route: 065
  2. NIVOLUMAB [Suspect]
     Active Substance: NIVOLUMAB
     Indication: MALIGNANT MELANOMA
     Dosage: UNK, Q2WK
     Route: 042
     Dates: start: 20171202, end: 20181112
  3. SYNTHROID [Concomitant]
     Active Substance: LEVOTHYROXINE SODIUM
     Indication: PRODUCT USED FOR UNKNOWN INDICATION
     Route: 065

REACTIONS (36)
  - Lower respiratory tract infection [Unknown]
  - Pulmonary mass [Unknown]
  - Dry eye [Not Recovered/Not Resolved]
  - Muscular weakness [Recovering/Resolving]
  - Rash pruritic [Unknown]
  - Cyst [Recovering/Resolving]
  - Gait disturbance [Unknown]
  - Fatigue [Recovering/Resolving]
  - Hypersomnia [Recovering/Resolving]
  - Weight decreased [Unknown]
  - Muscle spasms [Unknown]
  - Diarrhoea [Unknown]
  - Emotional disorder [Recovering/Resolving]
  - Specific gravity urine abnormal [Unknown]
  - Malignant neoplasm progression [Unknown]
  - Cataract [Unknown]
  - Gait inability [Not Recovered/Not Resolved]
  - Depressed mood [Recovering/Resolving]
  - Skin disorder [Unknown]
  - Blood lactate dehydrogenase increased [Unknown]
  - Nasopharyngitis [Unknown]
  - Wheezing [Unknown]
  - Insomnia [Unknown]
  - Musculoskeletal pain [Unknown]
  - Dyspnoea [Unknown]
  - Memory impairment [Not Recovered/Not Resolved]
  - Eye pruritus [Unknown]
  - Irritability [Unknown]
  - Toothache [Recovering/Resolving]
  - Asthenia [Recovering/Resolving]
  - Dyspnoea exertional [Not Recovered/Not Resolved]
  - Arthralgia [Unknown]
  - Pain in extremity [Unknown]
  - Decreased appetite [Recovering/Resolving]
  - Myalgia [Recovering/Resolving]
  - Dry skin [Unknown]

NARRATIVE: CASE EVENT DATE: 201712
